FAERS Safety Report 8984736 (Version 1)
Quarter: 2012Q4

REPORT INFORMATION
  Report Type: Spontaneous
  Country: US (occurrence: None)
  Receive Date: 20121217
  Receipt Date: 20121217
  Transmission Date: 20130627
  Serious: Yes (Other)
  Sender: FDA-Public Use
  Company Number: 2012P1066609

PATIENT
  Age: 62 Year
  Sex: Female

DRUGS (2)
  1. INFUMORPH [Suspect]
     Indication: FAILED BACK SURGERY SYNDROME
  2. INFUMORPH [Suspect]
     Indication: SPINAL PAIN

REACTIONS (8)
  - Device kink [None]
  - Device dislocation [None]
  - Withdrawal syndrome [None]
  - Feeling abnormal [None]
  - Pain in extremity [None]
  - Condition aggravated [None]
  - Convulsion [None]
  - Tremor [None]
